FAERS Safety Report 5274544-7 (Version None)
Quarter: 2007Q1

REPORT INFORMATION
  Report Type: 
  Country: None (occurrence: None)
  Receive Date: 20070323
  Receipt Date: 20061017
  Transmission Date: 20070707
  Serious: Yes (Other)
  Sender: FDA-Public Use
  Company Number: US-PFIZER INC-2007021145

PATIENT
  Age: 29 Year
  Sex: Male

DRUGS (1)
  1. GEODON [Suspect]
     Dosage: TEXT:UNKNOWN

REACTIONS (1)
  - ANAPHYLACTIC REACTION [None]
